FAERS Safety Report 6544183-6 (Version None)
Quarter: 2010Q1

REPORT INFORMATION
  Report Type: 
  Country: None (occurrence: None)
  Receive Date: 20100119
  Receipt Date: 20100119
  Transmission Date: 20100710
  Serious: Yes (Other)
  Sender: FDA-Public Use
  Company Number: None

PATIENT
  Age: 27 Year
  Sex: Female
  Weight: 54.4316 kg

DRUGS (1)
  1. TYLENOL (CAPLET) [Suspect]
     Indication: HEADACHE
     Dosage: 500 MG X 2 CAPLETS = 1000 MG ONCE PO
     Route: 048
     Dates: start: 20100106, end: 20100106

REACTIONS (3)
  - ABDOMINAL PAIN UPPER [None]
  - NAUSEA [None]
  - VOMITING [None]
